FAERS Safety Report 13227679 (Version 1)
Quarter: 2017Q1

REPORT INFORMATION
  Report Type: Spontaneous
  Country: DE (occurrence: DE)
  Receive Date: 20170213
  Receipt Date: 20170213
  Transmission Date: 20170428
  Serious: Yes (Hospitalization)
  Sender: FDA-Public Use
  Company Number: DE-ROCHE-1886733

PATIENT
  Sex: Male
  Weight: 86 kg

DRUGS (4)
  1. COTELLIC [Suspect]
     Active Substance: COBIMETINIB
     Indication: METASTATIC MALIGNANT MELANOMA
     Dosage: DRUG INTERRUPTED
     Route: 048
     Dates: start: 201611, end: 20170121
  2. COTELLIC [Suspect]
     Active Substance: COBIMETINIB
     Dosage: DRUG RESTARTED
     Route: 048
  3. ZELBORAF [Suspect]
     Active Substance: VEMURAFENIB
     Dosage: DRUG RESTARTED AT A REDUCED DOSE
     Route: 048
  4. ZELBORAF [Suspect]
     Active Substance: VEMURAFENIB
     Indication: METASTATIC MALIGNANT MELANOMA
     Dosage: DRUG INTERRUPTED
     Route: 048
     Dates: start: 201611, end: 20170121

REACTIONS (2)
  - Swelling face [Recovered/Resolved]
  - Mouth swelling [Recovered/Resolved]
